FAERS Safety Report 5862824-3 (Version None)
Quarter: 2008Q3

REPORT INFORMATION
  Report Type: 
  Country: None (occurrence: None)
  Receive Date: 20080828
  Receipt Date: 20080827
  Transmission Date: 20090109
  Serious: Yes (Other)
  Sender: FDA-Public Use
  Company Number: A0744652A

PATIENT
  Age: 59 Year
  Sex: Female
  Weight: 62 kg

DRUGS (9)
  1. ALLI [Suspect]
     Route: 048
     Dates: start: 20080813
  2. VOLTAREN GEL [Concomitant]
     Route: 061
  3. FISH OIL [Concomitant]
  4. PREVACID [Concomitant]
  5. VITAMIN B6 [Concomitant]
  6. VITAMIN D [Concomitant]
  7. CALCIUM [Concomitant]
  8. FOSAMAX [Concomitant]
  9. CENTRUM MULTIVITAMIN [Concomitant]

REACTIONS (8)
  - ABDOMINAL PAIN UPPER [None]
  - ANAL HAEMORRHAGE [None]
  - DYSPEPSIA [None]
  - FOOD POISONING [None]
  - FREQUENT BOWEL MOVEMENTS [None]
  - HAEMATOCHEZIA [None]
  - INSOMNIA [None]
  - VOMITING [None]
